FAERS Safety Report 22777321 (Version 4)
Quarter: 2023Q4

REPORT INFORMATION
  Report Type: Report from Study
  Country: CN (occurrence: None)
  Receive Date: 20230802
  Receipt Date: 20231205
  Transmission Date: 20240110
  Serious: Yes (Hospitalization)
  Sender: FDA-Public Use
  Company Number: CN-ROCHE-3201953

PATIENT
  Age: 67 Year
  Sex: Male
  Weight: 70 kg

DRUGS (8)
  1. ATEZOLIZUMAB [Suspect]
     Active Substance: ATEZOLIZUMAB
     Indication: Squamous cell carcinoma of lung
     Dosage: ON 11/OCT/2022, PATIENT RECEIVED MOST RECENT DOSE OF 1680 MG ATEZOLIZUMAB PRIOR TO AE AND SAE.
     Route: 041
     Dates: start: 20220909
  2. TIRAGOLUMAB [Suspect]
     Active Substance: TIRAGOLUMAB
     Indication: Squamous cell carcinoma of lung
     Dosage: ON 11/OCT/2022, PATIENT RECEIVED MOST RECENT DOSE OF 840 MG TIRAGOLUMAB PRIOR TO AE AND SAE.
     Route: 042
     Dates: start: 20220909
  3. PACLITAXEL [Concomitant]
     Active Substance: PACLITAXEL
     Dates: start: 20220701, end: 20220805
  4. CARBOPLATIN [Concomitant]
     Active Substance: CARBOPLATIN
     Dates: start: 20220701, end: 20220805
  5. MEGESTROL [Concomitant]
     Active Substance: MEGESTROL
     Route: 048
     Dates: start: 20220928, end: 20221011
  6. FAT EMULSION INJECTION (C14-24) [Concomitant]
     Indication: Nutritional supplementation
     Route: 042
     Dates: start: 20220928, end: 20220930
  7. OMEPRAZOLE [Concomitant]
     Active Substance: OMEPRAZOLE
     Route: 048
     Dates: start: 20230426, end: 20230428
  8. DOCETAXEL [Concomitant]
     Active Substance: DOCETAXEL\DOCETAXEL ANHYDROUS
     Indication: Neoplasm malignant
     Dates: start: 20230818, end: 20230818

REACTIONS (1)
  - COVID-19 pneumonia [Not Recovered/Not Resolved]

NARRATIVE: CASE EVENT DATE: 20221017
